FAERS Safety Report 8168400-4 (Version None)
Quarter: 2012Q1

REPORT INFORMATION
  Report Type: 
  Country: None (occurrence: None)
  Receive Date: 20120227
  Receipt Date: 20120216
  Transmission Date: 20120608
  Serious: Yes (Other)
  Sender: FDA-Public Use
  Company Number: JP-MERCK-1202USA01100

PATIENT
  Age: 54 Year
  Sex: Female

DRUGS (9)
  1. ISENTRESS [Suspect]
     Indication: HIV INFECTION
     Route: 048
     Dates: start: 20110420
  2. PEPCID [Concomitant]
     Route: 048
  3. TOPOTECAN [Concomitant]
     Route: 065
     Dates: start: 20111116
  4. TAXOL [Concomitant]
     Route: 065
  5. PARAPLATIN [Concomitant]
     Route: 065
  6. DEXAMETHASONE SODIUM PHOSPHATE [Concomitant]
     Route: 065
  7. RAMELTEON [Concomitant]
     Route: 065
  8. EPZICOM [Concomitant]
     Indication: HIV INFECTION
     Route: 065
     Dates: start: 20110420
  9. NORVASC [Concomitant]
     Route: 048

REACTIONS (2)
  - SINUS TACHYCARDIA [None]
  - PALPITATIONS [None]
